FAERS Safety Report 4872433-0 (Version None)
Quarter: 2005Q4

REPORT INFORMATION
  Report Type: 
  Country: None (occurrence: None)
  Receive Date: 20051201
  Receipt Date: 20050802
  Transmission Date: 20060501
  Serious: No
  Sender: FDA-Public Use
  Company Number: 2005PV000812

PATIENT
  Age: 48 Year
  Sex: Female
  Weight: 132.9039 kg

DRUGS (11)
  1. BYETTA [Suspect]
     Indication: DIABETES MELLITUS NON-INSULIN-DEPENDENT
     Dosage: 5 MCG;BID;SC
     Route: 058
     Dates: start: 20050801
  2. ACTOS [Concomitant]
  3. GLUCOVANCE [Concomitant]
  4. GLYBURIDE [Concomitant]
  5. BENICAR [Concomitant]
  6. LISINOPRIL [Concomitant]
  7. TORSEMIDE [Concomitant]
  8. K-DUR 10 [Concomitant]
  9. ALLEGRA [Concomitant]
  10. TOPROL [Concomitant]
  11. VITAMINS [Concomitant]

REACTIONS (5)
  - BLOOD GLUCOSE INCREASED [None]
  - DRUG INEFFECTIVE [None]
  - INJECTION SITE BRUISING [None]
  - NAUSEA [None]
  - SINUS OPERATION [None]
